FAERS Safety Report 14609791 (Version 2)
Quarter: 2018Q1

REPORT INFORMATION
  Report Type: Report from Study
  Country: US (occurrence: US)
  Receive Date: 20180307
  Receipt Date: 20180326
  Transmission Date: 20180509
  Serious: Yes (Hospitalization)
  Sender: FDA-Public Use
  Company Number: US-EISAI MEDICAL RESEARCH-EC-2018-036728

PATIENT
  Age: 58 Year
  Sex: Female
  Weight: 111.5 kg

DRUGS (11)
  1. VENLAFAXINE [Concomitant]
     Active Substance: VENLAFAXINE HYDROCHLORIDE
  2. ALBUTEROL. [Concomitant]
     Active Substance: ALBUTEROL
  3. NEUPOGEN [Concomitant]
     Active Substance: FILGRASTIM
  4. LASIX [Concomitant]
     Active Substance: FUROSEMIDE
  5. GABAPENTIN. [Concomitant]
     Active Substance: GABAPENTIN
  6. NORCO [Concomitant]
     Active Substance: ACETAMINOPHEN\HYDROCODONE BITARTRATE
  7. SODIUM CHLORIDE. [Concomitant]
     Active Substance: SODIUM CHLORIDE
  8. LENVATINIB [Suspect]
     Active Substance: LENVATINIB
     Indication: LEIOMYOSARCOMA
     Route: 048
     Dates: start: 20180124, end: 20180221
  9. ERIBULIN [Suspect]
     Active Substance: ERIBULIN
     Indication: LEIOMYOSARCOMA
     Route: 048
     Dates: start: 20180123, end: 20180219
  10. ONDANSETRON [Concomitant]
     Active Substance: ONDANSETRON
  11. DURAGESIC [Concomitant]
     Active Substance: FENTANYL

REACTIONS (1)
  - Pyelonephritis [Recovered/Resolved]

NARRATIVE: CASE EVENT DATE: 20180220
